FAERS Safety Report 9315305 (Version 2)
Quarter: 2013Q3

REPORT INFORMATION
  Report Type: Spontaneous
  Country: JP (occurrence: JP)
  Receive Date: 20130528
  Receipt Date: 20130709
  Transmission Date: 20140515
  Serious: Yes (Other)
  Sender: FDA-Public Use
  Company Number: JP-OTSUKA-JP-2013-11845

PATIENT
  Age: 35 Year
  Sex: Male

DRUGS (5)
  1. BUSULFEX [Suspect]
     Indication: CORD BLOOD TRANSPLANT THERAPY
     Dosage: 12.8 MG/KG, DAILY DOSE
     Route: 041
  2. FLUDARABINE [Concomitant]
     Indication: CORD BLOOD TRANSPLANT THERAPY
     Dosage: UNK
     Route: 065
  3. MELPHALAN [Concomitant]
     Indication: CORD BLOOD TRANSPLANT THERAPY
     Dosage: UNK
     Route: 065
  4. TACROLIMUS [Concomitant]
     Indication: PROPHYLAXIS AGAINST GRAFT VERSUS HOST DISEASE
     Dosage: UNK
     Route: 065
  5. VORICONAZOLE [Concomitant]
     Indication: ANTIFUNGAL PROPHYLAXIS
     Dosage: UNK
     Route: 065

REACTIONS (7)
  - Haemorrhagic infarction [Unknown]
  - Organising pneumonia [Unknown]
  - Parainfluenzae virus infection [Unknown]
  - Pyrexia [Unknown]
  - Diarrhoea [Unknown]
  - Rash [Unknown]
  - Cystitis haemorrhagic [Unknown]
